FAERS Safety Report 9921068 (Version 1)
Quarter: 2014Q1

REPORT INFORMATION
  Report Type: Spontaneous
  Country: US (occurrence: US)
  Receive Date: 20140225
  Receipt Date: 20140225
  Transmission Date: 20141002
  Serious: Yes (Death)
  Sender: FDA-Public Use
  Company Number: US-BRISTOL-MYERS SQUIBB COMPANY-20227427

PATIENT
  Sex: Male

DRUGS (2)
  1. BYETTA [Suspect]
     Dates: start: 20060602, end: 20120226
  2. JANUVIA [Suspect]
     Dates: start: 20100927, end: 20120216

REACTIONS (1)
  - Pancreatic carcinoma [Fatal]
